FAERS Safety Report 16321299 (Version 2)
Quarter: 2019Q2

REPORT INFORMATION
  Report Type: Spontaneous
  Country: JP (occurrence: JP)
  Receive Date: 20190516
  Receipt Date: 20190530
  Transmission Date: 20190711
  Serious: Yes (Other)
  Sender: FDA-Public Use
  Company Number: JP-MTPC-MTPC2019-0050609

PATIENT

DRUGS (2)
  1. RADICUT INJ. 30MG [Suspect]
     Active Substance: EDARAVONE
     Indication: CEREBRAL INFARCTION
     Route: 041
  2. OZAGREL SODIUM [Concomitant]
     Active Substance: OZAGREL SODIUM
     Route: 065

REACTIONS (1)
  - Cerebral infarction [Unknown]
